FAERS Safety Report 11349804 (Version 1)
Quarter: 2015Q3

REPORT INFORMATION
  Report Type: Spontaneous
  Country: US (occurrence: US)
  Receive Date: 20150807
  Receipt Date: 20150807
  Transmission Date: 20151125
  Serious: Yes (Other)
  Sender: FDA-Public Use
  Company Number: US-ROCHE-ITM201506IM017989

PATIENT
  Sex: Female
  Weight: 66.74 kg

DRUGS (3)
  1. ESBRIET [Suspect]
     Active Substance: PIRFENIDONE
     Indication: IDIOPATHIC PULMONARY FIBROSIS
     Dosage: 801 MG THREE TIMES DAILY.
     Route: 048
     Dates: start: 20150417
  2. COUMADIN [Concomitant]
     Active Substance: WARFARIN SODIUM
  3. WARFARIN [Suspect]
     Active Substance: WARFARIN
     Indication: PRODUCT USED FOR UNKNOWN INDICATION
     Route: 065

REACTIONS (6)
  - Pancreatitis [Unknown]
  - Hot flush [Unknown]
  - Decreased appetite [Unknown]
  - International normalised ratio decreased [Unknown]
  - Nausea [Unknown]
  - Weight decreased [Unknown]
